FAERS Safety Report 5114019-9 (Version None)
Quarter: 2006Q3

REPORT INFORMATION
  Report Type: 
  Country: None (occurrence: None)
  Receive Date: 20060921
  Receipt Date: 20060911
  Transmission Date: 20061208
  Serious: Yes (Hospitalization)
  Sender: FDA-Public Use
  Company Number: TPA2006A01434

PATIENT
  Age: 41 Year
  Sex: Female

DRUGS (6)
  1. ROZEREM (RAMELTEON) (8 MILLIGAM, TABLETS) [Suspect]
     Dosage: 8 MG, PER ORAL
     Route: 048
  2. XANAX [Suspect]
     Dosage: 0.5 MG
  3. OTHER UNKNOWN MEDICATIONS (ALL OTHER THERAPEUTIC PRODUCTS) [Concomitant]
  4. NEXIUM [Concomitant]
  5. MAXZIDE [Concomitant]
  6. SYNTHROID [Concomitant]

REACTIONS (3)
  - COMA [None]
  - INCORRECT DOSE ADMINISTERED [None]
  - INTENTIONAL DRUG MISUSE [None]
